FAERS Safety Report 13542021 (Version 7)
Quarter: 2017Q3

REPORT INFORMATION
  Report Type: Report from Study
  Country: US (occurrence: US)
  Receive Date: 20170512
  Receipt Date: 20170823
  Transmission Date: 20171127
  Serious: Yes (Death, Hospitalization, Other)
  Sender: FDA-Public Use
  Company Number: US-GILEAD-2017-0272452

PATIENT
  Age: 44 Year
  Sex: Female
  Weight: 58.5 kg

DRUGS (8)
  1. ADCIRCA [Suspect]
     Active Substance: TADALAFIL
     Indication: PULMONARY HYPERTENSION
     Dosage: 20 MG, UNK
     Route: 048
     Dates: start: 2014
  2. FLOLAN [Concomitant]
     Active Substance: EPOPROSTENOL SODIUM
  3. METHYLPREDISOLONE [Concomitant]
     Active Substance: METHYLPREDNISOLONE
  4. ANAKINRA [Concomitant]
     Active Substance: ANAKINRA
  5. UPTRAVI [Concomitant]
     Active Substance: SELEXIPAG
  6. AMBRISENTAN [Suspect]
     Active Substance: AMBRISENTAN
     Indication: PULMONARY HYPERTENSION
     Dosage: 10 MG, QD
     Route: 048
     Dates: start: 20130114
  7. OXYGEN. [Concomitant]
     Active Substance: OXYGEN
  8. LASIX [Concomitant]
     Active Substance: FUROSEMIDE

REACTIONS (9)
  - Catheterisation cardiac [Unknown]
  - Pericardial effusion [Unknown]
  - Surgery [Unknown]
  - Oxygen consumption increased [Unknown]
  - Chest discomfort [Unknown]
  - Exercise tolerance decreased [Not Recovered/Not Resolved]
  - Right ventricular failure [Not Recovered/Not Resolved]
  - Death [Fatal]
  - Speech disorder [Unknown]

NARRATIVE: CASE EVENT DATE: 20170505
